FAERS Safety Report 9498311 (Version 1)
Quarter: 2013Q3

REPORT INFORMATION
  Report Type: Spontaneous
  Country: DE (occurrence: None)
  Receive Date: 20130830
  Receipt Date: 20130830
  Transmission Date: 20140515
  Serious: Yes (Congenital Anomaly, Other)
  Sender: FDA-Public Use
  Company Number: NSR_01230_2013

PATIENT
  Sex: 0

DRUGS (2)
  1. ALLOPURINOL [Suspect]
     Indication: MATERNAL EXPOSURE DURING PREGNANCY
  2. CALCITRIOL [Concomitant]

REACTIONS (3)
  - Congenital hypoparathyroidism [None]
  - Premature baby [None]
  - Maternal exposure during pregnancy [None]
